FAERS Safety Report 10155028 (Version 2)
Quarter: 2014Q2

REPORT INFORMATION
  Report Type: Report from Study
  Country: US (occurrence: US)
  Receive Date: 20140506
  Receipt Date: 20140601
  Transmission Date: 20141212
  Serious: Yes (Other)
  Sender: FDA-Public Use
  Company Number: PHEH2014US008774

PATIENT
  Sex: Female

DRUGS (3)
  1. DIOVAN HCT [Suspect]
  2. HYDROCHLOROTHIAZIDE,VALSARTAN [Suspect]
  3. NEXIAM [Concomitant]

REACTIONS (5)
  - Cerebrovascular accident [Unknown]
  - Angiopathy [Unknown]
  - Feeling abnormal [Unknown]
  - Anxiety [Unknown]
  - Drug ineffective [Unknown]
